FAERS Safety Report 14579418 (Version 4)
Quarter: 2018Q3

REPORT INFORMATION
  Report Type: Report from Study
  Country: US (occurrence: US)
  Receive Date: 20180227
  Receipt Date: 20180725
  Transmission Date: 20181010
  Serious: Yes (Hospitalization, Other)
  Sender: FDA-Public Use
  Company Number: US-ACTELION-A-NJ2018-168235

PATIENT
  Age: 87 Year
  Sex: Female
  Weight: 88.44 kg

DRUGS (2)
  1. TRACLEER [Suspect]
     Active Substance: BOSENTAN
     Indication: PULMONARY ARTERIAL HYPERTENSION
     Dosage: 125 MG, BID
     Route: 048
  2. WARFARIN [Concomitant]
     Active Substance: WARFARIN

REACTIONS (12)
  - Crepitations [Unknown]
  - Fatigue [Unknown]
  - Hip fracture [Unknown]
  - Hip arthroplasty [Unknown]
  - Skin discolouration [Unknown]
  - Malaise [Unknown]
  - Heart sounds abnormal [Unknown]
  - Rales [Unknown]
  - Hip surgery [Unknown]
  - Dyspnoea exertional [Unknown]
  - Oedema peripheral [Unknown]
  - Dyspnoea [Unknown]
